FAERS Safety Report 21817542 (Version 2)
Quarter: 2023Q1

REPORT INFORMATION
  Report Type: Spontaneous
  Country: US (occurrence: US)
  Receive Date: 20230104
  Receipt Date: 20230112
  Transmission Date: 20230417
  Serious: No
  Sender: FDA-Public Use
  Company Number: US-PFIZER INC-202201402703

PATIENT
  Age: 68 Year
  Sex: Female
  Weight: 82.55 kg

DRUGS (3)
  1. SUTENT [Suspect]
     Active Substance: SUNITINIB MALATE
     Indication: Liver disorder
     Dosage: 12.5 MG, 1X/DAY
     Route: 048
     Dates: start: 202210
  2. SUTENT [Suspect]
     Active Substance: SUNITINIB MALATE
     Indication: Chest discomfort
  3. VOTRIENT [Concomitant]
     Active Substance: PAZOPANIB HYDROCHLORIDE
     Dosage: UNK

REACTIONS (3)
  - Alopecia [Unknown]
  - Pain in extremity [Unknown]
  - Limb discomfort [Unknown]

NARRATIVE: CASE EVENT DATE: 20220101
